FAERS Safety Report 7017472-9 (Version None)
Quarter: 2010Q3

REPORT INFORMATION
  Report Type: 
  Country: None (occurrence: None)
  Receive Date: 20100928
  Receipt Date: 20100917
  Transmission Date: 20110219
  Serious: Yes (Other)
  Sender: FDA-Public Use
  Company Number: JP-PFIZER INC-2010118912

PATIENT

DRUGS (2)
  1. AZULFIDINE [Suspect]
     Dosage: UNK
     Route: 048
  2. PREDONINE [Concomitant]
     Dosage: UNK

REACTIONS (1)
  - ASTHMA [None]
